FAERS Safety Report 16467503 (Version 1)
Quarter: 2019Q2

REPORT INFORMATION
  Report Type: Report from Study
  Country: None (occurrence: CO)
  Receive Date: 20190624
  Receipt Date: 20190624
  Transmission Date: 20190711
  Serious: Yes (Death)
  Sender: FDA-Public Use
  Company Number: CO-ABBVIE-19S-036-2830501-00

PATIENT
  Age: 45 Year
  Sex: Male

DRUGS (1)
  1. ZEMPLAR [Suspect]
     Active Substance: PARICALCITOL
     Indication: HYPERPARATHYROIDISM SECONDARY
     Dosage: POST-DIALYSIS
     Route: 042
     Dates: start: 20151030, end: 20190117

REACTIONS (1)
  - Death [Fatal]

NARRATIVE: CASE EVENT DATE: 20190520
